FAERS Safety Report 8936217 (Version 1)
Quarter: 2012Q4

REPORT INFORMATION
  Report Type: 
  Country: US (occurrence: US)
  Receive Date: 20121130
  Receipt Date: 20121130
  Transmission Date: 20130627
  Serious: No
  Sender: FDA-Public Use
  Company Number: US-ABBOTT-12P-163-0977238-00

PATIENT
  Sex: Male

DRUGS (16)
  1. ANDROGEL [Suspect]
     Indication: BLOOD TESTOSTERONE DECREASED
     Dosage: 2 pumps
     Route: 061
     Dates: start: 201206
  2. ASPIRIN [Concomitant]
     Indication: PRODUCT USED FOR UNKNOWN INDICATION
  3. ZOCOR [Concomitant]
     Indication: BLOOD CHOLESTEROL INCREASED
     Dosage: Unknown
  4. MULTIVITAMIN [Concomitant]
     Indication: VITAMIN SUPPLEMENTATION
  5. FISH OIL [Concomitant]
     Indication: SUPPLEMENTATION THERAPY
  6. INOSITOL [Concomitant]
     Indication: SUPPLEMENTATION THERAPY
  7. GINKO BILOBA [Concomitant]
     Indication: SUPPLEMENTATION THERAPY
  8. BILBERRY [Concomitant]
     Indication: SUPPLEMENTATION THERAPY
  9. L ARGININE [Concomitant]
     Indication: SUPPLEMENTATION THERAPY
  10. L-LYSINE [Concomitant]
     Indication: SUPPLEMENTATION THERAPY
  11. ZINC [Concomitant]
     Indication: SUPPLEMENTATION THERAPY
  12. VITAMIN C WITH ROSE HIPS [Concomitant]
     Indication: SUPPLEMENTATION THERAPY
  13. TYLENOL [Concomitant]
     Indication: MIGRAINE
     Dosage: PRN 
2 -500 upon onset
  14. GREEN TEA [Concomitant]
     Indication: SUPPLEMENTATION THERAPY
  15. KOREAN GINSING TEA [Concomitant]
     Indication: SUPPLEMENTATION THERAPY
  16. GINGER ROOT [Concomitant]
     Indication: SUPPLEMENTATION THERAPY
     Dosage: Places this into his tea

REACTIONS (1)
  - Prostatic specific antigen increased [Not Recovered/Not Resolved]
